FAERS Safety Report 4777955-9 (Version None)
Quarter: 2005Q3

REPORT INFORMATION
  Report Type: 
  Country: None (occurrence: None)
  Receive Date: 20050921
  Receipt Date: 20050906
  Transmission Date: 20060218
  Serious: Yes (Death, Hospitalization)
  Sender: FDA-Public Use
  Company Number: 2005US001204

PATIENT
  Age: 41 Year
  Sex: Male

DRUGS (15)
  1. PROGRAF [Suspect]
     Indication: PROPHYLAXIS AGAINST TRANSPLANT REJECTION
     Dosage: 4.00 MG, UID/QD, ORAL
     Route: 048
     Dates: start: 20050118
  2. PROGRAF [Suspect]
     Indication: PROPHYLAXIS AGAINST TRANSPLANT REJECTION
     Dosage: 4.00 MG, UID/QD, ORAL
     Route: 048
     Dates: start: 20050508
  3. CELLCEPT [Suspect]
     Dosage: 1.00 G, UID/QD, ORAL
     Route: 048
     Dates: start: 20050118
  4. CELLCEPT [Suspect]
     Dosage: 1.00 G, UID/QD, ORAL
     Route: 048
     Dates: start: 20050421
  5. PREDNISONE [Suspect]
     Dosage: 10.00 MG, UID/QD, ORAL
     Route: 048
     Dates: start: 20050118
  6. PREDNISONE [Suspect]
     Dosage: 10.00 MG, UID/QD, ORAL
     Route: 048
     Dates: start: 20050219
  7. BACTRIM [Concomitant]
  8. RANITIDINE [Concomitant]
  9. INSULIN (INSULIN) [Concomitant]
  10. CAPTOPRIL [Concomitant]
  11. FUROSEMIDE [Concomitant]
  12. LOSARTAN POTASSIUM [Concomitant]
  13. PENTOXIFYLLIN AL [Concomitant]
  14. ASPIRIN [Concomitant]
  15. TICLOPIDINE (TICLOPIDINE) [Concomitant]

REACTIONS (7)
  - ACUTE MYOCARDIAL INFARCTION [None]
  - ACUTE PULMONARY OEDEMA [None]
  - DUODENITIS [None]
  - GASTRITIS [None]
  - HAEMATOCRIT DECREASED [None]
  - RESUSCITATION [None]
  - UPPER GASTROINTESTINAL HAEMORRHAGE [None]
